FAERS Safety Report 8102289-4 (Version None)
Quarter: 2012Q1

REPORT INFORMATION
  Report Type: 
  Country: None (occurrence: None)
  Receive Date: 20120131
  Receipt Date: 20120131
  Transmission Date: 20120608
  Serious: Yes (Other)
  Sender: FDA-Public Use
  Company Number: None

PATIENT
  Sex: Female
  Weight: 117.9352 kg

DRUGS (4)
  1. GAS-X PREVENTION [Suspect]
     Indication: ABDOMINAL DISCOMFORT
     Dosage: 1 SOFT GEL AT BEDTIME BEDTIME + AFTER MEALS AS NEEDED WEEKLY
     Dates: start: 20090101, end: 20120101
  2. GAS-X PREVENTION [Suspect]
     Indication: FLATULENCE
     Dosage: 1 SOFT GEL AT BEDTIME BEDTIME + AFTER MEALS AS NEEDED WEEKLY
     Dates: start: 20090101, end: 20120101
  3. GAS-X PREVENTION [Suspect]
     Indication: DYSPEPSIA
     Dosage: 1 SOFT GEL AT BEDTIME BEDTIME + AFTER MEALS AS NEEDED WEEKLY
     Dates: start: 20090101, end: 20120101
  4. GAS-X PREVENTION [Suspect]
     Indication: ABDOMINAL DISTENSION
     Dosage: 1 SOFT GEL AT BEDTIME BEDTIME + AFTER MEALS AS NEEDED WEEKLY
     Dates: start: 20090101, end: 20120101

REACTIONS (2)
  - DRUG INTERACTION [None]
  - DRUG HYPERSENSITIVITY [None]
